FAERS Safety Report 10598190 (Version 1)
Quarter: 2014Q4

REPORT INFORMATION
  Report Type: Spontaneous
  Country: US (occurrence: US)
  Receive Date: 20141121
  Receipt Date: 20141121
  Transmission Date: 20150529
  Serious: Yes (Death, Hospitalization)
  Sender: FDA-Public Use
  Company Number: US-SA-2014SA156432

PATIENT
  Age: 43 Year
  Sex: Female
  Weight: 63 kg

DRUGS (4)
  1. ALPRAZOLAM. [Suspect]
     Active Substance: ALPRAZOLAM
     Route: 048
  2. ZOLPIDEM [Suspect]
     Active Substance: ZOLPIDEM\ZOLPIDEM TARTRATE
     Route: 048
  3. PROPRANOLOL HYDROCHLORIDE. [Suspect]
     Active Substance: PROPRANOLOL HYDROCHLORIDE
     Route: 048
  4. TRAMADOL [Suspect]
     Active Substance: TRAMADOL
     Route: 048

REACTIONS (11)
  - Hypotension [Unknown]
  - Ejection fraction decreased [Unknown]
  - Cardiogenic shock [Unknown]
  - Pulse absent [Unknown]
  - Blood creatinine increased [Unknown]
  - Blood glucose increased [Unknown]
  - Cardiac arrest [Fatal]
  - Respiration abnormal [Unknown]
  - Ventricular hypokinesia [Unknown]
  - Heart rate increased [Unknown]
  - Overdose [Unknown]
